FAERS Safety Report 25245663 (Version 3)
Quarter: 2025Q4

REPORT INFORMATION
  Report Type: Spontaneous
  Country: JP (occurrence: JP)
  Receive Date: 20250428
  Receipt Date: 20251027
  Transmission Date: 20260117
  Serious: Yes (Death, Other)
  Sender: ALEXION PHARMACEUTICALS
  Company Number: JP-ASTRAZENECA-250041044_013120_P_1

PATIENT
  Age: 8 Decade
  Sex: Male
  Weight: 54 kg

DRUGS (2)
  1. IMFINZI [Suspect]
     Active Substance: DURVALUMAB
     Indication: Hepatocellular carcinoma
  2. IMJUDO [Suspect]
     Active Substance: TREMELIMUMAB\TREMELIMUMAB-ACTL
     Indication: Hepatocellular carcinoma

REACTIONS (5)
  - Pneumocystis jirovecii pneumonia [Fatal]
  - Immune-mediated enterocolitis [Unknown]
  - Metastases to bone [Unknown]
  - Diarrhoea [Unknown]
  - Pyrexia [Unknown]
